FAERS Safety Report 7908110-9 (Version None)
Quarter: 2011Q4

REPORT INFORMATION
  Report Type: 
  Country: None (occurrence: None)
  Receive Date: 20111111
  Receipt Date: 20111103
  Transmission Date: 20120403
  Serious: Yes (Hospitalization)
  Sender: FDA-Public Use
  Company Number: DE-BIOGENIDEC-2011BI040367

PATIENT
  Age: 43 Year
  Sex: Male

DRUGS (1)
  1. AVONEX [Suspect]
     Indication: MULTIPLE SCLEROSIS
     Route: 030
     Dates: start: 20030901

REACTIONS (4)
  - INCISION SITE INFECTION [None]
  - BLISTER [None]
  - LIGAMENT SPRAIN [None]
  - WRONG DRUG ADMINISTERED [None]
